FAERS Safety Report 20818096 (Version 2)
Quarter: 2022Q2

REPORT INFORMATION
  Report Type: Report from Study
  Country: CA (occurrence: CA)
  Receive Date: 20220512
  Receipt Date: 20220615
  Transmission Date: 20220721
  Serious: Yes (Death, Other)
  Sender: FDA-Public Use
  Company Number: CA-BAYER-2022A067335

PATIENT
  Sex: Female

DRUGS (1)
  1. EYLEA [Suspect]
     Active Substance: AFLIBERCEPT
     Indication: Diabetic retinal oedema
     Dosage: 2MG/0.05ML, DOSAGE, FREQUENCY AND TOTAL NUMBER OF INJECTIONS UNKNOWN, STRENGTH:40 MG/ML,SOL FOR INJ
     Route: 031
     Dates: start: 20170911, end: 20180108

REACTIONS (1)
  - Death [Fatal]
